FAERS Safety Report 10667217 (Version 2)
Quarter: 2016Q4

REPORT INFORMATION
  Report Type: Spontaneous
  Country: JP (occurrence: JP)
  Receive Date: 20141222
  Receipt Date: 20161022
  Transmission Date: 20170206
  Serious: Yes (Other)
  Sender: FDA-Public Use
  Company Number: JP-RANBAXY-2014R1-90490

PATIENT
  Sex: Female
  Weight: 2.53 kg

DRUGS (8)
  1. METFORMIN [Suspect]
     Active Substance: METFORMIN HYDROCHLORIDE
     Indication: DIABETES MELLITUS
     Dosage: 1500 MG, DAILY
     Route: 064
  2. INSULIN ASPART [Suspect]
     Active Substance: INSULIN ASPART
     Indication: DIABETES MELLITUS
     Dosage: 120 U, DAILY
     Route: 064
  3. INSULIN LISPRO [Suspect]
     Active Substance: INSULIN LISPRO
     Indication: DIABETES MELLITUS
     Dosage: 36 U, DAILY
     Route: 064
  4. ISOPHANE INSULIN [Suspect]
     Active Substance: INSULIN NOS
     Indication: DIABETES MELLITUS
     Dosage: 80 U, DAILY
     Route: 064
  5. ISOPHANE INSULIN [Suspect]
     Active Substance: INSULIN NOS
     Dosage: 24 U, DAILY
     Route: 064
  6. INSULIN LISPRO [Suspect]
     Active Substance: INSULIN LISPRO
     Dosage: 150 U, DAILY
     Route: 064
  7. ISOPHANE INSULIN [Suspect]
     Active Substance: INSULIN NOS
     Dosage: 4 U, DAILY
     Route: 064
  8. METFORMIN [Suspect]
     Active Substance: METFORMIN HYDROCHLORIDE
     Indication: DIABETES MELLITUS
     Dosage: 2250 MG, DAILY
     Route: 064

REACTIONS (3)
  - Small for dates baby [Unknown]
  - Foetal exposure during pregnancy [Recovered/Resolved]
  - Hypoglycaemia [Recovered/Resolved]
